FAERS Safety Report 4480769-0 (Version None)
Quarter: 2005Q1

REPORT INFORMATION
  Report Type: 
  Country: None (occurrence: None)
  Receive Date: 20041019
  Receipt Date: 20041002
  Transmission Date: 20050727
  Serious: Yes (Life-Threatening)
  Sender: FDA-Public Use
  Company Number: US013823

PATIENT
  Age: 71 Year
  Sex: Female

DRUGS (9)
  1. ACTIQ [Suspect]
     Indication: BACK PAIN
     Dosage: 200 UG PRN BUCCAL
     Route: 002
     Dates: start: 20040826, end: 20040918
  2. PREVACID [Concomitant]
  3. WELLBUTRIN [Concomitant]
  4. SERZONE [Concomitant]
  5. ZOCOR [Concomitant]
  6. ZANTAC [Concomitant]
  7. VALIUM [Concomitant]
  8. TYLENOL [Concomitant]
  9. TYLENOL W/ CODEINE NO. 4 [Concomitant]

REACTIONS (6)
  - BALANCE DISORDER [None]
  - COORDINATION ABNORMAL [None]
  - DIZZINESS [None]
  - HALLUCINATION [None]
  - INSOMNIA [None]
  - OVERDOSE [None]
